FAERS Safety Report 7407999-X (Version None)
Quarter: 2011Q2

REPORT INFORMATION
  Report Type: 
  Country: None (occurrence: None)
  Receive Date: 20110412
  Receipt Date: 20110408
  Transmission Date: 20111010
  Serious: Yes (Other)
  Sender: FDA-Public Use
  Company Number: US-PFIZER INC-2011078341

PATIENT
  Sex: Male
  Weight: 158.7 kg

DRUGS (9)
  1. METFORMIN HCL/PIOGLITAZONE HCL [Concomitant]
     Indication: DIABETES MELLITUS
     Dosage: 15/850 MG TWO TIMES A DAY
     Route: 048
  2. LIPITOR [Concomitant]
     Indication: BLOOD CHOLESTEROL INCREASED
     Dosage: 40 MG, 1X/DAY
     Route: 048
  3. ACETYLSALICYLIC ACID [Concomitant]
     Indication: ANTICOAGULANT THERAPY
     Dosage: 325 MG, 1X/DAY
     Route: 048
  4. CHANTIX [Suspect]
     Indication: SMOKING CESSATION THERAPY
     Dosage: 0.5MG DAILY
     Route: 048
     Dates: start: 20090301
  5. CHANTIX [Suspect]
     Dosage: 1 MG, 2X/DAY
     Route: 048
     Dates: end: 20090701
  6. METOPROLOL [Concomitant]
     Indication: MYOCARDIAL INFARCTION
     Dosage: 50 MG, 2X/DAY
     Route: 048
  7. WELLBUTRIN [Suspect]
     Indication: SMOKING CESSATION THERAPY
     Dosage: UNK
     Dates: start: 20080101, end: 20090701
  8. QUINAPRIL HYDROCHLORIDE [Concomitant]
     Dosage: 10 MG, 1X/DAY
     Route: 048
  9. METOPROLOL [Concomitant]
     Indication: HYPERTENSION

REACTIONS (3)
  - ABNORMAL DREAMS [None]
  - WEIGHT INCREASED [None]
  - DRUG INEFFECTIVE [None]
